FAERS Safety Report 13952199 (Version 1)
Quarter: 2017Q3

REPORT INFORMATION
  Report Type: Other
  Country: US (occurrence: US)
  Receive Date: 20170911
  Receipt Date: 20170911
  Transmission Date: 20171128
  Serious: Yes (Other)
  Sender: FDA-Public Use
  Company Number: US-GLENMARK PHARMACEUTICALS-2017GMK027957

PATIENT

DRUGS (1)
  1. GABAPENTIN TABLETS [Suspect]
     Active Substance: GABAPENTIN
     Indication: PAIN
     Dosage: 2700 MGS
     Route: 065

REACTIONS (7)
  - Suicidal ideation [Recovered/Resolved]
  - Drug ineffective for unapproved indication [Recovered/Resolved]
  - Peripheral swelling [Recovered/Resolved]
  - Impaired driving ability [Recovered/Resolved]
  - Pain [Recovered/Resolved]
  - Product substitution issue [Unknown]
  - Dysstasia [Recovered/Resolved]
